FAERS Safety Report 9659556 (Version 1)
Quarter: 2013Q4

REPORT INFORMATION
  Report Type: Spontaneous
  Country: US (occurrence: US)
  Receive Date: 20131031
  Receipt Date: 20131031
  Transmission Date: 20140711
  Serious: Yes (Other)
  Sender: FDA-Public Use
  Company Number: US-ELI_LILLY_AND_COMPANY-US201310007087

PATIENT
  Sex: Female
  Weight: 87.53 kg

DRUGS (1)
  1. CYMBALTA [Suspect]
     Indication: PRODUCT USED FOR UNKNOWN INDICATION
     Dosage: UNK, UNKNOWN
     Route: 065

REACTIONS (6)
  - Dyspnoea [Unknown]
  - Hypersensitivity [Unknown]
  - Swelling [Unknown]
  - Drug intolerance [Unknown]
  - Vomiting [Unknown]
  - Nausea [Unknown]
